FAERS Safety Report 8282545-X (Version None)
Quarter: 2012Q2

REPORT INFORMATION
  Report Type: 
  Country: None (occurrence: None)
  Receive Date: 20120413
  Receipt Date: 20120406
  Transmission Date: 20120825
  Serious: No
  Sender: FDA-Public Use
  Company Number: US-AMGEN-USASP2012010228

PATIENT
  Age: 65 Year
  Sex: Male

DRUGS (1)
  1. ENBREL [Suspect]
     Indication: PSORIASIS
     Dosage: 50 MG, 2 TIMES/WK
     Route: 058
     Dates: start: 20070101

REACTIONS (6)
  - INTERVERTEBRAL DISC PROTRUSION [None]
  - HYPERSOMNIA [None]
  - FATIGUE [None]
  - PSORIASIS [None]
  - PROSTATOMEGALY [None]
  - LUMBAR SPINAL STENOSIS [None]
